FAERS Safety Report 7487912-X (Version None)
Quarter: 2011Q2

REPORT INFORMATION
  Report Type: 
  Country: None (occurrence: None)
  Receive Date: 20110518
  Receipt Date: 20110510
  Transmission Date: 20111010
  Serious: Yes (Other)
  Sender: FDA-Public Use
  Company Number: US-JNJFOC-20110202386

PATIENT
  Sex: Female
  Weight: 52 kg

DRUGS (4)
  1. REBIF [Suspect]
     Route: 058
     Dates: start: 20100920, end: 20101110
  2. REBIF [Suspect]
     Indication: MULTIPLE SCLEROSIS
     Route: 058
     Dates: start: 20110101
  3. ORTHO TRI-CYCLEN LO [Suspect]
     Indication: CONTRACEPTION
     Route: 065
     Dates: start: 20060101, end: 20101117
  4. ADVIL LIQUI-GELS [Concomitant]
     Route: 065
     Dates: start: 20100920, end: 20101117

REACTIONS (1)
  - HEPATIC ENZYME INCREASED [None]
